FAERS Safety Report 14317895 (Version 1)
Quarter: 2017Q4

REPORT INFORMATION
  Report Type: Spontaneous
  Country: US (occurrence: US)
  Receive Date: 20171222
  Receipt Date: 20171222
  Transmission Date: 20180321
  Serious: No
  Sender: FDA-Public Use
  Company Number: US-WEST-WARD PHARMACEUTICALS CORP.-US-H14001-17-00160

PATIENT
  Age: 15 Year
  Sex: Female
  Weight: 52.66 kg

DRUGS (4)
  1. LITHIUM CARBONATE. [Suspect]
     Active Substance: LITHIUM CARBONATE
     Indication: MOOD SWINGS
     Dosage: 300 MG EVERY OTHER DAY, 600 MG ON THE REST OF THE DAYS
     Route: 048
     Dates: start: 2016
  2. DEPLIN [Concomitant]
     Active Substance: LEVOMEFOLATE CALCIUM
     Indication: PRODUCT USED FOR UNKNOWN INDICATION
     Route: 065
  3. LITHIUM CARBONATE. [Suspect]
     Active Substance: LITHIUM CARBONATE
     Indication: HALLUCINATION
     Route: 048
     Dates: start: 201701
  4. FLUOXETINE [Concomitant]
     Active Substance: FLUOXETINE HYDROCHLORIDE
     Indication: PRODUCT USED FOR UNKNOWN INDICATION
     Route: 065

REACTIONS (2)
  - Hallucination, tactile [Recovered/Resolved]
  - Antipsychotic drug level below therapeutic [Recovered/Resolved]

NARRATIVE: CASE EVENT DATE: 20170109
